FAERS Safety Report 5786023-9 (Version None)
Quarter: 2008Q2

REPORT INFORMATION
  Report Type: 
  Country: None (occurrence: None)
  Receive Date: 20080620
  Receipt Date: 20080620
  Transmission Date: 20081010
  Serious: Yes (Other)
  Sender: FDA-Public Use
  Company Number: None

PATIENT
  Age: 41 Year
  Sex: Female
  Weight: 120.2032 kg

DRUGS (4)
  1. LYRICA [Suspect]
     Indication: DEPRESSION
     Dosage: 50 MG QD PO
     Route: 048
     Dates: start: 20080602, end: 20080614
  2. LYRICA [Suspect]
     Indication: SUICIDAL IDEATION
     Dosage: 50 MG QD PO
     Route: 048
     Dates: start: 20080602, end: 20080614
  3. TRAMADOL HCL [Concomitant]
  4. TYLENOL [Concomitant]

REACTIONS (2)
  - CRYING [None]
  - SUICIDAL IDEATION [None]
